FAERS Safety Report 13746824 (Version 1)
Quarter: 2017Q3

REPORT INFORMATION
  Report Type: Spontaneous
  Country: US (occurrence: US)
  Receive Date: 20170712
  Receipt Date: 20170712
  Transmission Date: 20171127
  Serious: No
  Sender: FDA-Public Use
  Company Number: None

PATIENT
  Sex: Female
  Weight: 78.09 kg

DRUGS (1)
  1. HARVONI [Suspect]
     Active Substance: LEDIPASVIR\SOFOSBUVIR
     Indication: CHRONIC HEPATITIS C
     Dosage: 90/400MG DAILY PO
     Route: 048

REACTIONS (6)
  - Lichen planus [None]
  - Dysphagia [None]
  - Bronchitis [None]
  - Abdominal pain [None]
  - Decreased appetite [None]
  - Fall [None]
